FAERS Safety Report 26135360 (Version 1)
Quarter: 2025Q4

REPORT INFORMATION
  Report Type: Spontaneous
  Country: US (occurrence: US)
  Receive Date: 20251209
  Receipt Date: 20251209
  Transmission Date: 20260117
  Serious: No
  Sender: BAYER HEALTHCARE LLC
  Company Number: US-BAYER-2025A162167

PATIENT
  Age: 72 Year
  Sex: Female

DRUGS (2)
  1. CLARITIN [Suspect]
     Active Substance: LORATADINE
     Indication: Hypersensitivity
     Dosage: 10 MG, QD, EVERY DAY AT THE SAME TIME 10PM
     Route: 048
     Dates: start: 20251201, end: 20251207
  2. CLARITIN [Suspect]
     Active Substance: LORATADINE
     Indication: Nasopharyngitis

REACTIONS (2)
  - Condition aggravated [Recovered/Resolved with Sequelae]
  - Rhinalgia [Recovered/Resolved with Sequelae]

NARRATIVE: CASE EVENT DATE: 20251203
